FAERS Safety Report 6165566-2 (Version None)
Quarter: 2009Q2

REPORT INFORMATION
  Report Type: 
  Country: None (occurrence: None)
  Receive Date: 20090421
  Receipt Date: 20090421
  Transmission Date: 20091009
  Serious: No
  Sender: FDA-Public Use
  Company Number: None

PATIENT
  Age: 44 Year
  Sex: Female
  Weight: 72.5755 kg

DRUGS (2)
  1. TAXOL [Suspect]
     Indication: UTERINE CANCER
     Dosage: EVERY THREE WEEKS
     Dates: start: 20050701, end: 20051120
  2. CARBOPLATIN [Suspect]
     Indication: UTERINE CANCER
     Dosage: EVERY THREE WEEKS
     Dates: start: 20050701, end: 20051120

REACTIONS (22)
  - ACTIVITIES OF DAILY LIVING IMPAIRED [None]
  - AGGRESSION [None]
  - AMNESIA [None]
  - ANGER [None]
  - APHASIA [None]
  - BLOOD DISORDER [None]
  - BONE PAIN [None]
  - BRAIN INJURY [None]
  - CONFUSIONAL STATE [None]
  - DEPRESSION [None]
  - DISTURBANCE IN ATTENTION [None]
  - DRUG HYPERSENSITIVITY [None]
  - EMOTIONAL DISORDER [None]
  - GAIT DISTURBANCE [None]
  - HYPOAESTHESIA [None]
  - IMPAIRED DRIVING ABILITY [None]
  - INAPPROPRIATE AFFECT [None]
  - INFECTION [None]
  - MEMORY IMPAIRMENT [None]
  - NERVOUS SYSTEM DISORDER [None]
  - NEUROPATHY PERIPHERAL [None]
  - URTICARIA [None]
